FAERS Safety Report 10969435 (Version 1)
Quarter: 2015Q1

REPORT INFORMATION
  Report Type: Spontaneous
  Country: None (occurrence: None)
  Receive Date: 20150330
  Receipt Date: 20150330
  Transmission Date: 20150721
  Serious: Yes (Hospitalization)
  Sender: FDA-Public Use
  Company Number: None

PATIENT
  Age: 48 Year
  Sex: Female
  Weight: 80 kg

DRUGS (1)
  1. TRULICITY [Suspect]
     Active Substance: DULAGLUTIDE
     Dates: start: 20150324

REACTIONS (4)
  - Dehydration [None]
  - Vomiting [None]
  - Acute kidney injury [None]
  - Nausea [None]

NARRATIVE: CASE EVENT DATE: 20150324
